FAERS Safety Report 12625715 (Version 1)
Quarter: 2016Q3

REPORT INFORMATION
  Report Type: Spontaneous
  Country: US (occurrence: None)
  Receive Date: 20160804
  Receipt Date: 20160804
  Transmission Date: 20161109
  Serious: No
  Sender: FDA-Public Use
  Company Number: None

PATIENT
  Age: 65 Year
  Sex: Female

DRUGS (2)
  1. PREVANTICS SWABSTICK [Suspect]
     Active Substance: CHLORHEXIDINE GLUCONATE\ISOPROPYL ALCOHOL
     Indication: CATHETER MANAGEMENT
  2. TRIPLE PRO PICC [Suspect]
     Active Substance: DEVICE

REACTIONS (1)
  - Device related infection [None]

NARRATIVE: CASE EVENT DATE: 20160725
